FAERS Safety Report 8549166-2 (Version None)
Quarter: 2012Q3

REPORT INFORMATION
  Report Type: 
  Country: None (occurrence: None)
  Receive Date: 20120730
  Receipt Date: 20120724
  Transmission Date: 20120928
  Serious: Yes (Death)
  Sender: FDA-Public Use
  Company Number: JP-PFIZER INC-2012179037

PATIENT

DRUGS (1)
  1. UNASYN [Suspect]
     Dosage: 3 G, 1X/DAY
     Route: 041

REACTIONS (1)
  - SHOCK [None]
